FAERS Safety Report 7652302-3 (Version None)
Quarter: 2011Q3

REPORT INFORMATION
  Report Type: 
  Country: None (occurrence: None)
  Receive Date: 20110803
  Receipt Date: 20110726
  Transmission Date: 20111222
  Serious: Yes (Other)
  Sender: FDA-Public Use
  Company Number: CA-BAYER-2011-051505

PATIENT
  Age: 30 Year
  Sex: Female

DRUGS (1)
  1. MIRENA [Suspect]
     Indication: CONTRACEPTION
     Dosage: 20 ?G, UNK
     Route: 015
     Dates: start: 20110614, end: 20110614

REACTIONS (4)
  - UTERINE PERFORATION [None]
  - MUSCULOSKELETAL DISCOMFORT [None]
  - DEVICE DIFFICULT TO USE [None]
  - BACK PAIN [None]
